FAERS Safety Report 9962835 (Version 1)
Quarter: 2014Q1

REPORT INFORMATION
  Report Type: Report from Study
  Country: US (occurrence: US)
  Receive Date: 20140305
  Receipt Date: 20140305
  Transmission Date: 20141002
  Serious: No
  Sender: FDA-Public Use
  Company Number: US-ABBVIE-13P-163-1112277-00

PATIENT
  Sex: Female

DRUGS (5)
  1. HUMIRA [Suspect]
     Indication: PSORIASIS
     Dates: start: 20130621
  2. SERTRALINE [Concomitant]
     Indication: DEPRESSION
     Dosage: 1 TAB DAILY
  3. SERTRALINE [Concomitant]
     Indication: ANXIETY
  4. RESCUE INHALER [Concomitant]
     Indication: ASTHMA
  5. CYCLOBENZAPRINE [Concomitant]
     Indication: BACK DISORDER

REACTIONS (5)
  - Musculoskeletal stiffness [Unknown]
  - Headache [Unknown]
  - Menstruation delayed [Unknown]
  - Neck pain [Unknown]
  - Abdominal pain [Unknown]
